FAERS Safety Report 4644387-3 (Version None)
Quarter: 2005Q2

REPORT INFORMATION
  Report Type: 
  Country: None (occurrence: None)
  Receive Date: 20050331
  Receipt Date: 20041217
  Transmission Date: 20051028
  Serious: No
  Sender: FDA-Public Use
  Company Number: 04P-163-0283897-00

PATIENT
  Age: 68 Year
  Sex: Female
  Weight: 63.5036 kg

DRUGS (9)
  1. HUMIRA [Suspect]
     Indication: RHEUMATOID ARTHRITIS
     Dosage: 40 MG, 1 IN 2 WK, SUBCUTANEOUS
     Route: 058
     Dates: start: 20030101
  2. VICODIN [Concomitant]
  3. ASPIRIN [Concomitant]
  4. CLOPIDOGREL BISULFATE [Concomitant]
  5. SAROSAMID [Concomitant]
  6. POTASSIUM CHLORIDE [Concomitant]
  7. ESTROGEN NOS [Concomitant]
  8. ATENOLOL [Concomitant]
  9. OMEPRAZOLE [Concomitant]

REACTIONS (3)
  - DRUG INEFFECTIVE [None]
  - LACRIMATION INCREASED [None]
  - RHINORRHOEA [None]
